FAERS Safety Report 12492995 (Version 1)
Quarter: 2016Q2

REPORT INFORMATION
  Report Type: Not Available
  Country: ES (occurrence: ES)
  Receive Date: 20160623
  Receipt Date: 20160623
  Transmission Date: 20160815
  Serious: Yes (Other)
  Sender: FDA-Public Use
  Company Number: ES-PURDUE PHARMA-GBR-2016-0037169

PATIENT
  Age: 85 Year
  Sex: Female

DRUGS (1)
  1. TARGIN 20 MG/10 MG COMPRIMIDOS DE LIBERACI?PROLONGADA [Suspect]
     Active Substance: NALOXONE HYDROCHLORIDE\OXYCODONE HYDROCHLORIDE
     Indication: OSTEOARTHRITIS
     Dosage: 1 DF, BID
     Route: 048
     Dates: start: 20160501, end: 20160606

REACTIONS (6)
  - Delirium [Not Recovered/Not Resolved]
  - Narcolepsy [Not Recovered/Not Resolved]
  - Thinking abnormal [Not Recovered/Not Resolved]
  - Derealisation [Not Recovered/Not Resolved]
  - Constipation [Not Recovered/Not Resolved]
  - Speech disorder [Not Recovered/Not Resolved]
